FAERS Safety Report 7384701-1 (Version None)
Quarter: 2011Q1

REPORT INFORMATION
  Report Type: 
  Country: None (occurrence: None)
  Receive Date: 20110330
  Receipt Date: 20110324
  Transmission Date: 20110831
  Serious: Yes (Death, Other)
  Sender: FDA-Public Use
  Company Number: PHHY2011FR23691

PATIENT
  Age: 62 Year
  Sex: Male

DRUGS (3)
  1. IMATINIB [Suspect]
     Indication: CHRONIC MYELOID LEUKAEMIA
     Dosage: 400 MG, DAILY
  2. SORAFENIB [Suspect]
     Dosage: 600 MG, DAILY
  3. SORAFENIB [Suspect]
     Indication: THYROID CANCER
     Dosage: 400 MG, BID
     Dates: start: 20071101

REACTIONS (8)
  - ACUTE MYOCARDIAL INFARCTION [None]
  - DILATATION VENTRICULAR [None]
  - CORONARY ARTERY STENOSIS [None]
  - VENTRICULAR HYPERTROPHY [None]
  - BUNDLE BRANCH BLOCK LEFT [None]
  - CARDIOGENIC SHOCK [None]
  - ARTERIOSCLEROSIS CORONARY ARTERY [None]
  - ACUTE CORONARY SYNDROME [None]
